FAERS Safety Report 19157912 (Version 1)
Quarter: 2021Q2

REPORT INFORMATION
  Report Type: Spontaneous
  Country: US (occurrence: US)
  Receive Date: 20210419
  Receipt Date: 20210419
  Transmission Date: 20210717
  Serious: Yes (Other)
  Sender: FDA-Public Use
  Company Number: None

PATIENT
  Age: 64 Year
  Sex: Male
  Weight: 83.01 kg

DRUGS (6)
  1. LOVASTATIN 20 MG [Suspect]
     Active Substance: LOVASTATIN
     Dates: start: 2007
  2. ZETIA [Suspect]
     Active Substance: EZETIMIBE
     Dates: start: 2016
  3. LIPITOR [Suspect]
     Active Substance: ATORVASTATIN CALCIUM
     Indication: HYPERCHOLESTEROLAEMIA
     Dates: start: 2003, end: 2006
  4. TRICOR [Suspect]
     Active Substance: FENOFIBRATE
     Dates: start: 2007
  5. CRESTOR [Suspect]
     Active Substance: ROSUVASTATIN CALCIUM
  6. ROSUVASTATIN (GENERIC) [Suspect]
     Active Substance: ROSUVASTATIN
     Dates: start: 2011, end: 2016

REACTIONS (5)
  - Myalgia [None]
  - Rash [None]
  - Muscle spasms [None]
  - Skin burning sensation [None]
  - Product substitution issue [None]
